FAERS Safety Report 21867371 (Version 1)
Quarter: 2023Q1

REPORT INFORMATION
  Report Type: Report from Study
  Country: CA (occurrence: CA)
  Receive Date: 20230116
  Receipt Date: 20230116
  Transmission Date: 20230418
  Serious: Yes (Hospitalization)
  Sender: FDA-Public Use
  Company Number: CA-CHIESI-2023CHF00073

PATIENT
  Age: 43 Year
  Sex: Female
  Weight: 63.5 kg

DRUGS (2)
  1. DEFERIPRONE [Suspect]
     Active Substance: DEFERIPRONE
     Indication: Serum ferritin increased
     Dosage: 3000 MILLIGRAM, BID
     Route: 048
     Dates: start: 20210218
  2. DEFERIPRONE [Suspect]
     Active Substance: DEFERIPRONE
     Dosage: 3000 MILLIGRAM, BID
     Route: 048
     Dates: start: 2022

REACTIONS (4)
  - Haematological infection [Recovered/Resolved]
  - Kidney infection [Recovered/Resolved]
  - Cystitis [Recovered/Resolved]
  - Off label use [Not Recovered/Not Resolved]

NARRATIVE: CASE EVENT DATE: 20210218
